FAERS Safety Report 6291027-6 (Version None)
Quarter: 2009Q3

REPORT INFORMATION
  Report Type: 
  Country: None (occurrence: None)
  Receive Date: 20090730
  Receipt Date: 20090720
  Transmission Date: 20100115
  Serious: Yes (Hospitalization)
  Sender: FDA-Public Use
  Company Number: DE-ROCHE-646495

PATIENT
  Age: 53 Year
  Sex: Female

DRUGS (4)
  1. CELLCEPT [Suspect]
     Indication: RENAL TRANSPLANT
     Route: 065
     Dates: start: 20000101
  2. CELLCEPT [Suspect]
     Dosage: CURRENT DOSE
     Route: 065
  3. SANDIMMUNE [Concomitant]
     Indication: RENAL TRANSPLANT
  4. ARANESP [Concomitant]
     Indication: RENAL TRANSPLANT

REACTIONS (1)
  - PROGRESSIVE BULBAR PALSY [None]
